FAERS Safety Report 22116573 (Version 4)
Quarter: 2023Q4

REPORT INFORMATION
  Report Type: Spontaneous
  Country: CA (occurrence: CA)
  Receive Date: 20230320
  Receipt Date: 20231006
  Transmission Date: 20240109
  Serious: Yes (Other)
  Sender: FDA-Public Use
  Company Number: CA-PFIZER INC-202300102557

PATIENT
  Age: 77 Year
  Sex: Female

DRUGS (13)
  1. SOMAVERT [Suspect]
     Active Substance: PEGVISOMANT
     Indication: Acromegaly
     Dosage: 20 MG, 6 X WEEK
     Route: 058
     Dates: start: 20131007, end: 20160427
  2. SOMAVERT [Suspect]
     Active Substance: PEGVISOMANT
     Dosage: 20 MG, 6 X WEEK
     Route: 058
     Dates: start: 20180614, end: 2019
  3. SOMAVERT [Suspect]
     Active Substance: PEGVISOMANT
     Dosage: 10 MG, 1X/DAY
     Route: 058
     Dates: start: 2019, end: 2021
  4. SOMAVERT [Suspect]
     Active Substance: PEGVISOMANT
     Dosage: 20 MG, 1X/DAY
     Route: 058
     Dates: start: 2021
  5. ADALAT [Concomitant]
     Active Substance: NIFEDIPINE
     Dosage: 20 MG, 1X/DAY
     Route: 065
  6. CLONAZEPAM [Concomitant]
     Active Substance: CLONAZEPAM
     Dosage: 1 MG, 1X/DAY, HS
     Route: 065
  7. DOSTINEX [Concomitant]
     Active Substance: CABERGOLINE
     Dosage: 1 DF, DOSE: 0.5 MG 3X WEEK, STOPPED
     Route: 065
  8. PANTOPRAZOLE SODIUM [Concomitant]
     Active Substance: PANTOPRAZOLE SODIUM
     Dosage: 40 MG, AS NEEDED,  1X/DAY, PRN
     Route: 065
  9. SANDOSTATIN [Concomitant]
     Active Substance: OCTREOTIDE ACETATE
     Indication: Acromegaly
     Dosage: 20 MG, STOPPED SINCE JAN2021
     Route: 065
     Dates: start: 2016, end: 202101
  10. SYNTHROID [Concomitant]
     Active Substance: LEVOTHYROXINE SODIUM
     Dosage: 88 UG, 1X/DAY
     Route: 065
  11. TORADOL [Concomitant]
     Active Substance: KETOROLAC TROMETHAMINE
     Indication: Abdominal pain upper
     Dosage: 40 MG, 2X/DAY, PRN
     Route: 065
  12. TORADOL [Concomitant]
     Active Substance: KETOROLAC TROMETHAMINE
     Indication: Abdominal pain upper
  13. TRIAMTERENE [Concomitant]
     Active Substance: TRIAMTERENE
     Dosage: 25 MG, 1X/DAY
     Route: 065

REACTIONS (4)
  - Hypersensitivity pneumonitis [Not Recovered/Not Resolved]
  - Injection site bruising [Unknown]
  - Needle issue [Unknown]
  - Nausea [Not Recovered/Not Resolved]

NARRATIVE: CASE EVENT DATE: 20130101
